FAERS Safety Report 17467706 (Version 1)
Quarter: 2020Q1

REPORT INFORMATION
  Report Type: Spontaneous
  Country: PT (occurrence: PT)
  Receive Date: 20200227
  Receipt Date: 20200227
  Transmission Date: 20200409
  Serious: Yes (Other)
  Sender: FDA-Public Use
  Company Number: PT-HIKMA PHARMACEUTICALS USA INC.-PT-H14001-20-50652

PATIENT
  Age: 42 Year
  Sex: Female

DRUGS (1)
  1. VANCOMICINA HIKMA [Suspect]
     Active Substance: VANCOMYCIN HYDROCHLORIDE
     Indication: DEVICE RELATED INFECTION
     Route: 050
     Dates: start: 20200128, end: 20200131

REACTIONS (2)
  - Peritoneal dialysis complication [Recovered/Resolved]
  - Abdominal discomfort [Recovered/Resolved]

NARRATIVE: CASE EVENT DATE: 20200131
